FAERS Safety Report 6806907-X (Version None)
Quarter: 2010Q2

REPORT INFORMATION
  Report Type: 
  Country: None (occurrence: None)
  Receive Date: 20100629
  Receipt Date: 20100617
  Transmission Date: 20101027
  Serious: Yes (Hospitalization, Other)
  Sender: FDA-Public Use
  Company Number: CA-GENENTECH-276938

PATIENT
  Sex: Male
  Weight: 95.2 kg

DRUGS (4)
  1. OMALIZUMAB [Suspect]
     Indication: ASTHMA
     Dosage: 300 MG, 1/MONTH
     Route: 058
     Dates: start: 20080131
  2. OMALIZUMAB [Suspect]
     Dosage: 300 MG, 1/MONTH
     Route: 058
     Dates: start: 20091008
  3. STEROIDS NOS [Concomitant]
     Indication: DRUG USE FOR UNKNOWN INDICATION
  4. PREDNISONE [Concomitant]
     Indication: DRUG USE FOR UNKNOWN INDICATION

REACTIONS (7)
  - ALLERGIC SINUSITIS [None]
  - ASTHMA [None]
  - MUSCULOSKELETAL CHEST PAIN [None]
  - POLYP [None]
  - PRODUCTIVE COUGH [None]
  - SKELETAL INJURY [None]
  - WHEEZING [None]
